FAERS Safety Report 4318580-3 (Version None)
Quarter: 2004Q1

REPORT INFORMATION
  Report Type: 
  Country: None (occurrence: None)
  Receive Date: 20040315
  Receipt Date: 20040303
  Transmission Date: 20041129
  Serious: Yes (Other)
  Sender: FDA-Public Use
  Company Number: 2004201757JP

PATIENT
  Age: 48 Year
  Sex: Male

DRUGS (3)
  1. IDAMYCIN (IDARUBICIN) HYDROCHLORIDE) POWDER, STERILE [Suspect]
     Indication: ACUTE MYELOID LEUKAEMIA
     Dosage: 12 MG/M2, CYCLIC, IV
     Route: 042
     Dates: start: 20010602, end: 20010604
  2. CYTOSAR-U [Suspect]
     Indication: ACUTE MYELOID LEUKAEMIA
     Dosage: 100 MG/M2, CYCLIC, IV
     Route: 042
     Dates: start: 20010602, end: 20010608
  3. MITOXANTRONE [Suspect]
     Indication: ACUTE MYELOID LEUKAEMIA
     Dosage: 8 MG/M2, CYCLIC
     Dates: start: 20010714, end: 20010714

REACTIONS (2)
  - NEUTROPENIA [None]
  - PNEUMONIA [None]
